FAERS Safety Report 9807733 (Version 3)
Quarter: 2014Q2

REPORT INFORMATION
  Report Type: Report from Study
  Country: BR (occurrence: BR)
  Receive Date: 20140110
  Receipt Date: 20140603
  Transmission Date: 20141212
  Serious: Yes (Hospitalization, Other)
  Sender: FDA-Public Use
  Company Number: BR-ROCHE-1218703

PATIENT
  Age: 58 Year
  Sex: Female
  Weight: 94 kg

DRUGS (7)
  1. ACTEMRA [Suspect]
     Indication: RHEUMATOID ARTHRITIS
     Dosage: MOST RECENT INFUSION: 16/DEC/2013.
     Route: 065
     Dates: start: 20121101
  2. SYNTHYROID [Concomitant]
  3. ARAVA [Concomitant]
  4. ARCOXIA [Concomitant]
  5. VITAMIN E [Concomitant]
  6. PREDSIM [Concomitant]
  7. SIMVASTATIN [Concomitant]

REACTIONS (26)
  - Blood pressure increased [Recovering/Resolving]
  - Hernia [Unknown]
  - Osteoarthritis [Not Recovered/Not Resolved]
  - Vision blurred [Not Recovered/Not Resolved]
  - Dry eye [Not Recovered/Not Resolved]
  - Swelling [Not Recovered/Not Resolved]
  - Thrombocytopenia [Not Recovered/Not Resolved]
  - Blood cholesterol abnormal [Not Recovered/Not Resolved]
  - Blood triglycerides abnormal [Not Recovered/Not Resolved]
  - Abdominal pain upper [Recovering/Resolving]
  - Alopecia [Recovering/Resolving]
  - Finger deformity [Not Recovered/Not Resolved]
  - Drug ineffective [Unknown]
  - Injury corneal [Recovering/Resolving]
  - Vitamin D decreased [Recovering/Resolving]
  - Neck pain [Not Recovered/Not Resolved]
  - Pain [Not Recovered/Not Resolved]
  - Allergic bronchitis [Recovering/Resolving]
  - Erythema [Recovered/Resolved]
  - Pruritus [Recovered/Resolved]
  - Skin discolouration [Not Recovered/Not Resolved]
  - Intervertebral disc protrusion [Not Recovered/Not Resolved]
  - Muscle spasms [Not Recovered/Not Resolved]
  - Memory impairment [Not Recovered/Not Resolved]
  - Drug dose omission [Unknown]
  - Blood pressure increased [Unknown]
